FAERS Safety Report 18171478 (Version 3)
Quarter: 2020Q3

REPORT INFORMATION
  Report Type: Report from Study
  Country: BR (occurrence: BR)
  Receive Date: 20200819
  Receipt Date: 20200904
  Transmission Date: 20201103
  Serious: Yes (Disabling, Other)
  Sender: FDA-Public Use
  Company Number: PHHY2018BR034767

PATIENT
  Age: 71 Year
  Sex: Female

DRUGS (2)
  1. COSENTYX [Suspect]
     Active Substance: SECUKINUMAB
     Indication: RHEUMATIC DISORDER
     Dosage: 300 MG, QMO
     Route: 058
     Dates: start: 20200807
  2. COSENTYX [Suspect]
     Active Substance: SECUKINUMAB
     Indication: PSORIATIC ARTHROPATHY
     Dosage: 300 MG, QMO
     Route: 058
     Dates: start: 20171123

REACTIONS (12)
  - Arthropathy [Not Recovered/Not Resolved]
  - Depression [Recovering/Resolving]
  - Rheumatic disorder [Unknown]
  - Urinary tract infection [Unknown]
  - Joint swelling [Unknown]
  - Hypoacusis [Unknown]
  - Blood pressure increased [Recovering/Resolving]
  - Malaise [Recovering/Resolving]
  - Dysstasia [Not Recovered/Not Resolved]
  - Product dose omission issue [Unknown]
  - Gait inability [Recovering/Resolving]
  - Influenza [Unknown]

NARRATIVE: CASE EVENT DATE: 201805
